FAERS Safety Report 7888504-0 (Version None)
Quarter: 2011Q4

REPORT INFORMATION
  Report Type: 
  Country: None (occurrence: None)
  Receive Date: 20111103
  Receipt Date: 20111030
  Transmission Date: 20120403
  Serious: Yes (Life-Threatening)
  Sender: FDA-Public Use
  Company Number: NZ-B.I. PHARMACEUTICALS,INC./RIDGEFIELD-2011-AU-02008AU

PATIENT
  Sex: Male

DRUGS (5)
  1. FLUTICASONE PROPIONATE/SALMETEROL [Concomitant]
  2. PRADAXA [Suspect]
  3. FUROSEMIDE [Concomitant]
  4. WARFARIN SODIUM [Suspect]
  5. SIMVASTATIN [Concomitant]

REACTIONS (4)
  - MELAENA [None]
  - MEDICATION ERROR [None]
  - GASTROINTESTINAL HAEMORRHAGE [None]
  - INTERNATIONAL NORMALISED RATIO INCREASED [None]
